FAERS Safety Report 6384149-2 (Version None)
Quarter: 2009Q4

REPORT INFORMATION
  Report Type: 
  Country: None (occurrence: None)
  Receive Date: 20091001
  Receipt Date: 20090923
  Transmission Date: 20100525
  Serious: Yes (Hospitalization)
  Sender: FDA-Public Use
  Company Number: B0594180A

PATIENT
  Sex: Male

DRUGS (3)
  1. ALLI [Suspect]
     Dosage: 3CAP PER DAY
     Route: 065
     Dates: start: 20090620, end: 20090810
  2. KESTIN [Concomitant]
     Indication: RHINITIS
     Route: 065
     Dates: start: 20090601
  3. SOLUPRED [Concomitant]
     Indication: RHINITIS
     Route: 065
     Dates: start: 20090601

REACTIONS (3)
  - INTENTIONAL DRUG MISUSE [None]
  - PANCREATITIS [None]
  - PANCREATITIS ACUTE [None]
